FAERS Safety Report 8556151 (Version 7)
Quarter: 2013Q3

REPORT INFORMATION
  Report Type: Spontaneous
  Country: US (occurrence: US)
  Receive Date: 20120510
  Receipt Date: 20130821
  Transmission Date: 20140515
  Serious: Yes (Death)
  Sender: FDA-Public Use
  Company Number: US-JNJFOC-20120506946

PATIENT
  Age: 35 Year
  Sex: Female
  Weight: 53.07 kg

DRUGS (5)
  1. LEVAQUIN [Suspect]
     Indication: BRONCHITIS
     Route: 048
     Dates: start: 20110415
  2. PREDNISONE [Suspect]
     Indication: ASTHMA
     Route: 048
  3. ADVAIR [Concomitant]
     Indication: ASTHMA
     Route: 065
  4. PYRIDOSTIGMINE [Concomitant]
     Indication: MYASTHENIA GRAVIS
     Route: 048
  5. PROVENTIL HFA INHALANT [Concomitant]
     Route: 055

REACTIONS (8)
  - Myasthenia gravis [Fatal]
  - Respiratory distress [Fatal]
  - Drug prescribing error [Unknown]
  - Pain [Unknown]
  - Anxiety [Unknown]
  - Fear [Unknown]
  - Panic disorder [Unknown]
  - Discomfort [Unknown]
